FAERS Safety Report 9571180 (Version 5)
Quarter: 2014Q1

REPORT INFORMATION
  Report Type: Report from Study
  Country: CA (occurrence: CA)
  Receive Date: 20131001
  Receipt Date: 20140124
  Transmission Date: 20141002
  Serious: Yes (Death, Hospitalization, Other)
  Sender: FDA-Public Use
  Company Number: PHHY2011CA95787

PATIENT
  Age: 61 Year
  Sex: Male

DRUGS (4)
  1. SANDOSTATIN LAR [Suspect]
     Indication: NEUROENDOCRINE TUMOUR
     Dosage: 30 MG, EVERY 4 WEEKS
     Route: 030
     Dates: start: 20090608, end: 20131204
  2. AFINITOR [Suspect]
     Indication: NEUROENDOCRINE TUMOUR
     Dosage: 5 MG, TID
     Route: 048
     Dates: start: 20110918, end: 201202
  3. AFINITOR [Suspect]
     Dosage: 10 MG, DAILY
     Route: 048
     Dates: start: 20130214
  4. AFINITOR [Suspect]
     Dosage: 5 MG, QD
     Route: 048
     Dates: end: 20130926

REACTIONS (32)
  - Death [Fatal]
  - Infection [Unknown]
  - Pneumonia [Unknown]
  - Dyspnoea [Unknown]
  - Dementia [Unknown]
  - Rash [Unknown]
  - Metastases to bone [Unknown]
  - Delirium [Unknown]
  - Feeling abnormal [Unknown]
  - Muscle spasms [Unknown]
  - Musculoskeletal stiffness [Unknown]
  - Myalgia [Unknown]
  - Sciatica [Unknown]
  - Influenza [Unknown]
  - Gait disturbance [Unknown]
  - Inappropriate schedule of drug administration [Unknown]
  - Arthralgia [Unknown]
  - Dysphagia [Unknown]
  - Weight decreased [Unknown]
  - Stomatitis [Unknown]
  - Erythema [Unknown]
  - Dry mouth [Not Recovered/Not Resolved]
  - Dysgeusia [Unknown]
  - Insomnia [Unknown]
  - Pain in extremity [Unknown]
  - Acne [Unknown]
  - Fungal infection [Recovered/Resolved]
  - Fatigue [Unknown]
  - Decreased appetite [Recovering/Resolving]
  - Asthenia [Unknown]
  - Dehydration [Unknown]
  - Headache [Unknown]
